FAERS Safety Report 8315275-6 (Version None)
Quarter: 2012Q2

REPORT INFORMATION
  Report Type: 
  Country: None (occurrence: None)
  Receive Date: 20120426
  Receipt Date: 20120424
  Transmission Date: 20120825
  Serious: Yes (Hospitalization)
  Sender: FDA-Public Use
  Company Number: PHEH2012US008265

PATIENT
  Sex: Female
  Weight: 98.866 kg

DRUGS (1)
  1. RECLAST [Suspect]
     Indication: OSTEOPOROSIS
     Dosage: 5 MG, YEARLY
     Route: 042
     Dates: start: 20120103

REACTIONS (4)
  - CHILLS [None]
  - URINARY INCONTINENCE [None]
  - TROPONIN INCREASED [None]
  - CHEST PAIN [None]
